FAERS Safety Report 5319039-7 (Version None)
Quarter: 2007Q2

REPORT INFORMATION
  Report Type: 
  Country: None (occurrence: None)
  Receive Date: 20070501
  Receipt Date: 20070312
  Transmission Date: 20071010
  Serious: No
  Sender: FDA-Public Use
  Company Number: A03200702330

PATIENT
  Sex: Female

DRUGS (2)
  1. AMBIEN [Suspect]
     Indication: INSOMNIA
     Dosage: 10 MG AT LEAST FIVE TIMES/WEEK - ORAL
     Route: 048
     Dates: start: 20040101, end: 20060101
  2. ESCITALOPRAM OXALATE [Concomitant]

REACTIONS (10)
  - ABNORMAL BEHAVIOUR [None]
  - AMNESIA [None]
  - BACK PAIN [None]
  - DEPRESSION [None]
  - HYPERPHAGIA [None]
  - MORBID THOUGHTS [None]
  - MUSCULOSKELETAL PAIN [None]
  - NECK PAIN [None]
  - SLEEP WALKING [None]
  - WEIGHT INCREASED [None]
